FAERS Safety Report 8922437 (Version 3)
Quarter: 2013Q4

REPORT INFORMATION
  Report Type: Report from Study
  Country: IT (occurrence: IT)
  Receive Date: 20121123
  Receipt Date: 20131129
  Transmission Date: 20140711
  Serious: Yes (Disabling)
  Sender: FDA-Public Use
  Company Number: IT-JNJFOC-20121107580

PATIENT
  Age: 77 Year
  Sex: Male

DRUGS (3)
  1. ABIRATERONE ACETATE [Suspect]
     Route: 048
  2. ABIRATERONE ACETATE [Suspect]
     Indication: PROSTATE CANCER METASTATIC
     Route: 048
     Dates: start: 20120619, end: 20120704
  3. PREDNISONE [Suspect]
     Indication: PROSTATE CANCER METASTATIC
     Route: 048
     Dates: start: 20120619

REACTIONS (1)
  - General physical health deterioration [Unknown]
